FAERS Safety Report 21359566 (Version 1)
Quarter: 2022Q3

REPORT INFORMATION
  Report Type: Spontaneous
  Country: FR (occurrence: FR)
  Receive Date: 20220921
  Receipt Date: 20220921
  Transmission Date: 20221027
  Serious: Yes (Other)
  Sender: FDA-Public Use
  Company Number: FR-MYLANLABS-2022M1094971

PATIENT
  Age: 17 Year
  Sex: Female

DRUGS (2)
  1. HULIO [Suspect]
     Active Substance: ADALIMUMAB-FKJP
     Indication: Spinal osteoarthritis
     Dosage: 40 MILLIGRAM, BIWEEKLY (ONE INJECTION EVERY 15 DAYS)
     Route: 065
     Dates: start: 20220908
  2. PROZAC [Concomitant]
     Active Substance: FLUOXETINE HYDROCHLORIDE
     Dosage: UNK
     Route: 065

REACTIONS (3)
  - Monoplegia [Unknown]
  - Pain in extremity [Unknown]
  - Cyanosis [Unknown]

NARRATIVE: CASE EVENT DATE: 20220912
